FAERS Safety Report 22097948 (Version 1)
Quarter: 2023Q1

REPORT INFORMATION
  Report Type: Spontaneous
  Country: US (occurrence: None)
  Receive Date: 20230314
  Receipt Date: 20230314
  Transmission Date: 20230418
  Serious: No
  Sender: FDA-Public Use
  Company Number: None

PATIENT
  Age: 54 Year
  Sex: Male
  Weight: 99 kg

DRUGS (1)
  1. CAMZYOS [Suspect]
     Active Substance: MAVACAMTEN
     Indication: Hypertrophic cardiomyopathy
     Dosage: FREQUENCY : DAILY;?
     Route: 048
     Dates: start: 20221216, end: 20230209

REACTIONS (9)
  - Drug ineffective [None]
  - Dizziness [None]
  - Nausea [None]
  - Rash [None]
  - Skin exfoliation [None]
  - Pruritus [None]
  - Scratch [None]
  - Dermatitis contact [None]
  - Electrocardiogram abnormal [None]

NARRATIVE: CASE EVENT DATE: 20230204
